FAERS Safety Report 22602387 (Version 22)
Quarter: 2025Q3

REPORT INFORMATION
  Report Type: Spontaneous
  Country: US (occurrence: US)
  Receive Date: 20230614
  Receipt Date: 20250704
  Transmission Date: 20251020
  Serious: Yes (Hospitalization, Disabling, Other)
  Sender: AMGEN
  Company Number: US-HORIZON THERAPEUTICS-HZN-2023-004418

PATIENT
  Age: 61 Year
  Sex: Female
  Weight: 57 kg

DRUGS (70)
  1. TEPEZZA [Suspect]
     Active Substance: TEPROTUMUMAB-TRBW
     Indication: Graves^ disease
     Dosage: 575 MILLIGRAM, Q3WK (FIRST INFUSION)
     Route: 042
     Dates: start: 20200429
  2. TEPEZZA [Suspect]
     Active Substance: TEPROTUMUMAB-TRBW
     Indication: Endocrine ophthalmopathy
     Dosage: 1154 MILLIGRAM, Q3WK (SECOND INFUSION)
     Route: 042
     Dates: start: 20200526
  3. TEPEZZA [Suspect]
     Active Substance: TEPROTUMUMAB-TRBW
     Dosage: 1136 MILLIGRAM, Q3WK (THIRD INFUSION)
     Route: 042
     Dates: start: 20200616
  4. TEPEZZA [Suspect]
     Active Substance: TEPROTUMUMAB-TRBW
     Dosage: 1144 MILLIGRAM, Q3WK (FOURTH INFUSION)
     Route: 042
     Dates: start: 20200707
  5. TEPEZZA [Suspect]
     Active Substance: TEPROTUMUMAB-TRBW
     Dosage: 1154 MILLIGRAM, Q3WK (FIFTH INFUSION)
     Route: 042
     Dates: start: 20200804
  6. TEPEZZA [Suspect]
     Active Substance: TEPROTUMUMAB-TRBW
     Dosage: 1170 MILLIGRAM, Q3WK (SIXTH INFUSION)
     Route: 042
     Dates: start: 20200831
  7. TEPEZZA [Suspect]
     Active Substance: TEPROTUMUMAB-TRBW
     Dosage: 1166 MILLIGRAM, Q3WK (SEVENTH INFUSION)
     Route: 042
     Dates: start: 20200925
  8. ATROVENT [Concomitant]
     Active Substance: IPRATROPIUM BROMIDE
     Indication: Product used for unknown indication
     Route: 045
     Dates: start: 20191217, end: 20201027
  9. INDERAL [Concomitant]
     Active Substance: PROPRANOLOL HYDROCHLORIDE
     Indication: Palpitations
     Dosage: 10 MILLIGRAM, TID
     Route: 048
     Dates: start: 20191021, end: 20201027
  10. INDERAL [Concomitant]
     Active Substance: PROPRANOLOL HYDROCHLORIDE
     Dosage: 10 MILLIGRAM, TID
     Route: 048
     Dates: start: 20201027
  11. CLARITIN [Concomitant]
     Active Substance: LORATADINE
     Indication: Product used for unknown indication
     Dosage: 10 MILLIGRAM, QD
     Route: 048
     Dates: start: 20190827
  12. SHINGRIX [Concomitant]
     Active Substance: RECOMBINANT VARICELLA ZOSTER VIRUS (VZV) GLYCOPROTEIN E
     Route: 051
     Dates: start: 20190827
  13. ADVIL [Concomitant]
     Active Substance: IBUPROFEN
     Indication: Pain
     Route: 048
     Dates: start: 20161206
  14. CARDIZEM [Concomitant]
     Active Substance: DILTIAZEM HYDROCHLORIDE
     Dosage: 60 MILLIGRAM, BID
     Route: 048
     Dates: start: 20191101, end: 20211005
  15. PRINIVIL [Concomitant]
     Active Substance: LISINOPRIL
     Route: 048
     Dates: start: 20190827, end: 20201027
  16. MOTRIN [Concomitant]
     Active Substance: IBUPROFEN
     Indication: Pain
     Route: 048
     Dates: start: 20161206
  17. ZESTRIL [Concomitant]
     Active Substance: LISINOPRIL
     Dosage: 10 MILLIGRAM, QD
     Route: 048
     Dates: start: 20190827, end: 20201027
  18. IBUPROFEN [Concomitant]
     Active Substance: IBUPROFEN
     Indication: Pain
     Route: 048
  19. METHIMAZOLE [Concomitant]
     Active Substance: METHIMAZOLE
     Dosage: 2.5 MILLIGRAM, QD
     Route: 065
  20. METHIMAZOLE [Concomitant]
     Active Substance: METHIMAZOLE
     Dosage: 5 MILLIGRAM, QD (5MG ONCE DAILY)
  21. SPIRIVA RESPIMAT [Concomitant]
     Active Substance: TIOTROPIUM BROMIDE
     Dosage: UNK, QD (INHALE 2 PUFFS INTO THE LUNGS DAILY) 2.5MCG/ACTUATION
     Dates: start: 20210406
  22. TAPAZOLE [Concomitant]
     Active Substance: METHIMAZOLE
     Dosage: 10 MILLIGRAM, QD, (2 TABLET)
     Route: 048
     Dates: start: 20191024, end: 20201016
  23. TAPAZOLE [Concomitant]
     Active Substance: METHIMAZOLE
     Dosage: 5 MILLIGRAM, QD
     Route: 048
     Dates: start: 20201027, end: 20220128
  24. MIDAZOLAM [Concomitant]
     Active Substance: MIDAZOLAM
     Route: 065
  25. FENTANYL [Concomitant]
     Active Substance: FENTANYL
     Route: 065
  26. HYDROMORPHONE [Concomitant]
     Active Substance: HYDROMORPHONE
     Route: 065
  27. LIDOCAINE [Concomitant]
     Active Substance: LIDOCAINE
     Route: 042
  28. PROPOFOL [Concomitant]
     Active Substance: PROPOFOL
     Route: 042
  29. ROCURONIUM [Concomitant]
     Active Substance: ROCURONIUM BROMIDE
     Route: 042
  30. SUCCINYLCHOLINE [Concomitant]
     Active Substance: SUCCINYLCHOLINE
     Route: 042
  31. CEFTRIAXONE [Concomitant]
     Active Substance: CEFTRIAXONE
     Route: 042
  32. METRONIDAZOLE [Concomitant]
     Active Substance: METRONIDAZOLE
     Route: 065
  33. DEXAMETHASONE [Concomitant]
     Active Substance: DEXAMETHASONE
     Route: 042
  34. ONDANSETRON [Concomitant]
     Active Substance: ONDANSETRON
     Route: 042
  35. SUGAMMADEX [Concomitant]
     Active Substance: SUGAMMADEX
     Route: 042
  36. AZELASTINE [Concomitant]
     Active Substance: AZELASTINE
     Dosage: 137 MICROGRAM, BID ((0.1 %) NASAL SPRAY AEROSOL 2 SPRAYS)
     Route: 045
  37. DULERA [Concomitant]
     Active Substance: FORMOTEROL FUMARATE DIHYDRATE\MOMETASONE FUROATE
     Dosage: UNK, BID (100 MEG-5 MEG/INH INHALATION AEROSOL 1 INH)
  38. OMEPRAZOLE [Concomitant]
     Active Substance: OMEPRAZOLE
     Dosage: 40 MILLIGRAM, BID
     Route: 048
  39. ReliOn Ventolin [Concomitant]
  40. SPIRIVA [Concomitant]
     Active Substance: TIOTROPIUM BROMIDE MONOHYDRATE
     Dosage: 18 MICROGRAM, QD
     Dates: end: 20201027
  41. SPIRIVA [Concomitant]
     Active Substance: TIOTROPIUM BROMIDE MONOHYDRATE
     Dosage: 18 MICROGRAM, QD
     Dates: start: 20191125, end: 20201027
  42. ZYRTEC [Concomitant]
     Active Substance: CETIRIZINE HYDROCHLORIDE
     Route: 065
  43. PERCOCET [Concomitant]
     Active Substance: ACETAMINOPHEN\OXYCODONE HYDROCHLORIDE
     Dosage: UNK UNK, Q4H (7.5-325 MG TABLET) 1 DOSAGE FORM
     Route: 048
  44. PERCOCET [Concomitant]
     Active Substance: ACETAMINOPHEN\OXYCODONE HYDROCHLORIDE
     Dosage: UNK UNK, Q4H (7.5-325 MG TABLET) 2 DOSAGE FORM
     Route: 048
  45. RACEPINEPHRINE [Concomitant]
     Active Substance: RACEPINEPHRINE
     Dosage: UNK, Q30MIN (2.25 % 0.5 ML VIAL-NEB 0.5 ML, NEBULIZED INHALATION)
  46. SODIUM CHLORIDE [Concomitant]
     Active Substance: SODIUM CHLORIDE
     Route: 042
  47. SODIUM CHLORIDE [Concomitant]
     Active Substance: SODIUM CHLORIDE
     Route: 042
  48. METOCLOPRAMIDE [Concomitant]
     Active Substance: METOCLOPRAMIDE
     Route: 042
  49. IOPAMIDOL [Concomitant]
     Active Substance: IOPAMIDOL
     Route: 042
  50. DIATRIZOATE MEGLUMINE [Concomitant]
     Active Substance: DIATRIZOATE MEGLUMINE
     Route: 048
  51. KETOROLAC [Concomitant]
     Active Substance: KETOROLAC TROMETHAMINE
     Route: 042
  52. SYSTANE (HYPROMELLOSE 2910 (4000 MPA.S)) [Concomitant]
     Active Substance: HYPROMELLOSE 2910 (4000 MPA.S)
     Dosage: UNK, QD 1-4 DROPS BOTH EYES
     Route: 047
  53. INFLUENZA VIRUS VACCINE [Concomitant]
     Active Substance: INFLUENZA VIRUS VACCINE
     Route: 065
     Dates: start: 202110
  54. INFLUENZA VIRUS VACCINE [Concomitant]
     Active Substance: INFLUENZA VIRUS VACCINE
     Route: 065
     Dates: start: 20220914
  55. TOZINAMERAN [Concomitant]
     Active Substance: TOZINAMERAN
     Route: 065
     Dates: start: 202110
  56. ZOSTAVAX [Concomitant]
     Active Substance: VARICELLA-ZOSTER VIRUS STRAIN OKA/MERCK LIVE ANTIGEN
     Route: 058
     Dates: start: 20170928, end: 20180908
  57. PNEUMOVAX 23 [Concomitant]
     Active Substance: PNEUMOCOCCAL VACCINE, POLYVALENT 23
     Route: 058
  58. COVID-19 vaccine [Concomitant]
     Route: 065
     Dates: start: 20201218
  59. COVID-19 vaccine [Concomitant]
     Route: 065
     Dates: start: 20210107
  60. COVID-19 vaccine [Concomitant]
     Route: 065
     Dates: start: 20211005
  61. CHOLECALCIFEROL [Concomitant]
     Active Substance: CHOLECALCIFEROL
     Dosage: 50 MICROGRAM, QD
     Route: 048
  62. TIOTROPIUM [Concomitant]
     Active Substance: TIOTROPIUM
     Dosage: UNK, QD 2 PUFF, X 90 DAYS
     Dates: start: 20221122, end: 20231106
  63. ALENDRONATE [Concomitant]
     Active Substance: ALENDRONATE SODIUM
     Dosage: 70 MILLIGRAM, QD
     Route: 065
  64. CALCIUM [Concomitant]
     Active Substance: CALCIUM
     Dosage: 500 MILLIGRAM, QD
     Route: 065
  65. VITAMIN D [Concomitant]
     Active Substance: VITAMIN D NOS
     Dosage: UNK, QD
     Route: 065
  66. METFORMIN HYDROCHLORIDE [Concomitant]
     Active Substance: METFORMIN HYDROCHLORIDE
     Dosage: 500 MILLIGRAM, TID
     Route: 065
  67. FLUZONE [Concomitant]
     Active Substance: INFLUENZA VIRUS VACCINE
     Route: 065
  68. VITAMIN B12 [Concomitant]
     Active Substance: CYANOCOBALAMIN
     Route: 065
  69. FOLATE SODIUM [Concomitant]
     Active Substance: FOLATE SODIUM
     Route: 065
  70. ALBUTEROL [Concomitant]
     Active Substance: ALBUTEROL
     Route: 065

REACTIONS (43)
  - Physical disability [Unknown]
  - Disability [Unknown]
  - Deafness neurosensory [Not Recovered/Not Resolved]
  - Gaze palsy [Recovered/Resolved]
  - Obstructive airways disorder [Unknown]
  - Anxiety [Unknown]
  - Concomitant disease aggravated [Unknown]
  - Pain [Unknown]
  - Injury [Unknown]
  - Emotional distress [Unknown]
  - Quality of life decreased [Unknown]
  - Discomfort [Unknown]
  - Toxicity to various agents [Unknown]
  - Depression [Not Recovered/Not Resolved]
  - Myalgia [Not Recovered/Not Resolved]
  - Diplopia [Unknown]
  - Eyelid disorder [Unknown]
  - Visual impairment [Unknown]
  - Economic problem [Unknown]
  - Eosinophil percentage decreased [Unknown]
  - Lymphocyte percentage increased [Unknown]
  - Mean cell volume increased [Unknown]
  - Neutrophil percentage decreased [Unknown]
  - Presbyopia [Unknown]
  - Dyspepsia [Unknown]
  - Blood potassium increased [Unknown]
  - Blepharospasm [Recovered/Resolved]
  - Frustration tolerance decreased [Unknown]
  - Blood triglycerides increased [Unknown]
  - Pollakiuria [Unknown]
  - Cerumen impaction [Unknown]
  - Nasal septum deviation [Unknown]
  - High density lipoprotein increased [Unknown]
  - COVID-19 [Unknown]
  - Headache [Not Recovered/Not Resolved]
  - Muscle spasms [Not Recovered/Not Resolved]
  - Fatigue [Not Recovered/Not Resolved]
  - Dysgeusia [Not Recovered/Not Resolved]
  - Tinnitus [Unknown]
  - Glycosylated haemoglobin increased [Unknown]
  - Eustachian tube dysfunction [Unknown]
  - Blood glucose increased [Unknown]
  - Pulmonary mass [Unknown]

NARRATIVE: CASE EVENT DATE: 20200101
